FAERS Safety Report 7724200-8 (Version None)
Quarter: 2011Q3

REPORT INFORMATION
  Report Type: 
  Country: None (occurrence: None)
  Receive Date: 20110901
  Receipt Date: 20110826
  Transmission Date: 20111222
  Serious: Yes (Other)
  Sender: FDA-Public Use
  Company Number: BR-ROCHE-799266

PATIENT
  Sex: Female
  Weight: 58 kg

DRUGS (2)
  1. ISOTRETINOIN [Suspect]
     Indication: ACNE
     Dosage: FREQUENCY:2 CAP/DAY, DOSE:20 MG/CAP.
     Route: 065
     Dates: start: 20060101, end: 20060101
  2. YAZ [Concomitant]
     Indication: CHEMICAL CONTRACEPTION

REACTIONS (1)
  - THYROID CANCER [None]
